FAERS Safety Report 5340350-8 (Version None)
Quarter: 2007Q2

REPORT INFORMATION
  Report Type: 
  Country: None (occurrence: None)
  Receive Date: 20070405
  Receipt Date: 20070119
  Transmission Date: 20071010
  Serious: No
  Sender: FDA-Public Use
  Company Number: US200701003853

PATIENT
  Age: 56 Year
  Sex: Male

DRUGS (9)
  1. CYMBALTA [Suspect]
     Indication: PAIN
     Dosage: 30 MG
     Dates: start: 20070101, end: 20070101
  2. ZOLOFT [Concomitant]
  3. METOPROLOL TARTRATE [Concomitant]
  4. IMDUR [Concomitant]
  5. ACCUPRIL [Concomitant]
  6. NORVASC [Concomitant]
  7. HYDROCHLOROTHIAZIDE [Concomitant]
  8. LORAZEPAM [Concomitant]
  9. ALLOPURINOL [Concomitant]

REACTIONS (6)
  - DECREASED APPETITE [None]
  - DIZZINESS [None]
  - FATIGUE [None]
  - HANGOVER [None]
  - HEADACHE [None]
  - NAUSEA [None]
